FAERS Safety Report 26054644 (Version 1)
Quarter: 2025Q4

REPORT INFORMATION
  Report Type: Spontaneous
  Country: GB (occurrence: None)
  Receive Date: 20251117
  Receipt Date: 20251117
  Transmission Date: 20260118
  Serious: Yes (Hospitalization, Disabling, Other)
  Sender: ORGANON
  Company Number: None

PATIENT
  Age: 3 Year
  Sex: Male

DRUGS (3)
  1. MONTELUKAST SODIUM [Suspect]
     Active Substance: MONTELUKAST SODIUM
     Dosage: 4 MILLIGRAM, QPM
     Dates: start: 20250924
  2. Beclometasone 50micrograms/dose inhaler CFC free}Clenil Modulite 50mic [Concomitant]
     Dosage: 50 MICROGRAM, ( 50MICROGRAMS/DOSE INHALER CFC FREE}CLENIL MODULITE 50MICROGRAMS/DOSE INHALER (CHIESI LTD))
  3. Salbutamol 100micrograms/dose inhaler CFC free [Concomitant]
     Dosage: 100 MICROGRAM 2 AS NECESSARY, (100MICROGRAMS/DOSE INHALER CFC FREE)

REACTIONS (3)
  - Psychomotor hyperactivity [Unknown]
  - Abnormal behaviour [Unknown]
  - Mood altered [Unknown]

NARRATIVE: CASE EVENT DATE: 20251006
